FAERS Safety Report 9949052 (Version 2)
Quarter: 2014Q1

REPORT INFORMATION
  Report Type: Spontaneous
  Country: US (occurrence: US)
  Receive Date: 20140304
  Receipt Date: 20140304
  Transmission Date: 20141002
  Serious: No
  Sender: FDA-Public Use
  Company Number: US-SHIRE-ALL1-2014-00465

PATIENT
  Age: 18 Year
  Sex: Female
  Weight: 54.42 kg

DRUGS (7)
  1. VYVANSE [Suspect]
     Indication: ATTENTION DEFICIT/HYPERACTIVITY DISORDER
     Dosage: UNK, UNKNOWN
     Route: 048
     Dates: end: 201206
  2. VYVANSE [Suspect]
     Dosage: 70 MG, 1X/DAY:QD
     Route: 048
     Dates: start: 201306
  3. KLONOPIN [Concomitant]
     Indication: ANXIETY
     Dosage: UNK, AS REQ^D
     Route: 048
     Dates: end: 201206
  4. KLONOPIN [Concomitant]
     Dosage: 1 MG, AS REQ^D
     Route: 048
     Dates: start: 201306
  5. CONTRACEPTIVES [Concomitant]
     Indication: CONTRACEPTION
     Dosage: UNK UNK, 1X/DAY:QD
     Route: 048
     Dates: start: 201307
  6. IBUPROFEN [Concomitant]
     Indication: HEADACHE
     Dosage: UNK, AS REQ^D
     Route: 048
  7. IBUPROFEN [Concomitant]
     Indication: BACK PAIN

REACTIONS (6)
  - Road traffic accident [Recovered/Resolved]
  - Disturbance in attention [Not Recovered/Not Resolved]
  - Apathy [Not Recovered/Not Resolved]
  - Fatigue [Not Recovered/Not Resolved]
  - Drug ineffective [Not Recovered/Not Resolved]
  - Product quality issue [Unknown]
